FAERS Safety Report 24284956 (Version 1)
Quarter: 2024Q3

REPORT INFORMATION
  Report Type: Spontaneous
  Country: US (occurrence: US)
  Receive Date: 20240905
  Receipt Date: 20240905
  Transmission Date: 20241016
  Serious: Yes (Hospitalization)
  Sender: IMMUNOGEN
  Company Number: US-IMMUNOGEN, INC.-US-IMGN-24-00665

PATIENT

DRUGS (1)
  1. ELAHERE [Suspect]
     Active Substance: MIRVETUXIMAB SORAVTANSINE-GYNX
     Indication: Product used for unknown indication
     Dosage: UNK UNK, UNK
     Route: 042

REACTIONS (1)
  - Pyrexia [Unknown]
